FAERS Safety Report 19461299 (Version 1)
Quarter: 2021Q2

REPORT INFORMATION
  Report Type: Spontaneous
  Country: CA (occurrence: CA)
  Receive Date: 20210625
  Receipt Date: 20210625
  Transmission Date: 20210717
  Serious: Yes (Other)
  Sender: FDA-Public Use
  Company Number: CA-ACCORD-228987

PATIENT
  Age: 59 Year
  Sex: Female

DRUGS (14)
  1. FLUOROURACIL. [Suspect]
     Active Substance: FLUOROURACIL
     Indication: PANCREATIC CARCINOMA METASTATIC
     Dosage: STARTED ON FOLFIRINOX AT 50% OF THE RECOMMENDED DOSE, INCREASED TO 100% BY THE FOURTH CYCLE
     Dates: start: 2015
  2. IRINOTECAN [Suspect]
     Active Substance: IRINOTECAN
     Indication: PANCREATIC CARCINOMA METASTATIC
     Dosage: STARTED ON FOLFIRINOX AT 50% OF THE RECOMMENDED DOSE, INCREASED TO 100% BY THE FOURTH CYCLE
     Dates: start: 2015
  3. FOLINIC ACID [Suspect]
     Active Substance: LEUCOVORIN
     Indication: PANCREATIC CARCINOMA METASTATIC
     Dosage: STARTED ON FOLFIRINOX AT 50%,  INCREASED TO 100% BY THE FOURTH CYCLE
     Dates: start: 2015
  4. PEGFILGRASTIM [Concomitant]
     Active Substance: PEGFILGRASTIM
     Indication: PROPHYLAXIS
     Dates: start: 2015
  5. OXALIPLATIN. [Suspect]
     Active Substance: OXALIPLATIN
     Indication: PANCREATIC CARCINOMA METASTATIC
     Dosage: STARTED ON FOLFIRINOX AT 50% OF THE RECOMMENDED DOSE, INCREASED TO 100% BY THE FOURTH CYCLE
     Dates: start: 2015
  6. OXALIPLATIN. [Suspect]
     Active Substance: OXALIPLATIN
     Indication: PANCREATIC CARCINOMA METASTATIC
     Dosage: STARTED ON FOLFIRINOX AT 50%,  INCREASED TO 100% BY THE FOURTH CYCLE
     Dates: start: 2015
  7. MORPHINE [Concomitant]
     Active Substance: MORPHINE
     Indication: ABDOMINAL PAIN
     Dates: start: 2015
  8. OXALIPLATIN. [Suspect]
     Active Substance: OXALIPLATIN
     Indication: METASTASES TO LIVER
     Dosage: STARTED ON FOLFIRINOX AT 50%,  INCREASED TO 100% BY THE FOURTH CYCLE
     Dates: start: 2015
  9. FLUOROURACIL. [Suspect]
     Active Substance: FLUOROURACIL
     Indication: METASTASES TO LIVER
     Dosage: STARTED ON FOLFIRINOX AT 50% OF THE RECOMMENDED DOSE, INCREASED TO 100% BY THE FOURTH CYCLE
     Dates: start: 2015
  10. FOLINIC ACID [Suspect]
     Active Substance: LEUCOVORIN
     Indication: PANCREATIC CARCINOMA METASTATIC
     Dosage: STARTED ON FOLFIRINOX AT 50%,  INCREASED TO 100% BY THE FOURTH CYCLE
     Dates: start: 2015
  11. IRINOTECAN [Suspect]
     Active Substance: IRINOTECAN
     Indication: PANCREATIC CARCINOMA METASTATIC
     Dosage: STARTED ON FOLFIRINOX AT 50% OF THE RECOMMENDED DOSE, INCREASED TO 100% BY THE FOURTH CYCLE
     Dates: start: 2015
  12. IRINOTECAN [Suspect]
     Active Substance: IRINOTECAN
     Indication: METASTASES TO LIVER
     Dosage: STARTED ON FOLFIRINOX AT 50% OF THE RECOMMENDED DOSE, INCREASED TO 100% BY THE FOURTH CYCLE
     Dates: start: 2015
  13. FLUOROURACIL. [Suspect]
     Active Substance: FLUOROURACIL
     Indication: METASTASES TO LIVER
     Dosage: STARTED ON FOLFIRINOX AT 50% OF THE RECOMMENDED DOSE, INCREASED TO 100% BY THE FOURTH CYCLE
     Dates: start: 2015
  14. FOLINIC ACID [Suspect]
     Active Substance: LEUCOVORIN
     Indication: METASTASES TO LIVER
     Dosage: STARTED ON FOLFIRINOX AT 50%,  INCREASED TO 100% BY THE FOURTH CYCLE
     Dates: start: 2015

REACTIONS (2)
  - Neuropathy peripheral [Unknown]
  - Fatigue [Unknown]

NARRATIVE: CASE EVENT DATE: 2015
